FAERS Safety Report 6498789-3 (Version None)
Quarter: 2009Q4

REPORT INFORMATION
  Report Type: 
  Country: None (occurrence: None)
  Receive Date: 20091215
  Receipt Date: 20091204
  Transmission Date: 20100525
  Serious: Yes (Other)
  Sender: FDA-Public Use
  Company Number: US-JNJFOC-20091202818

PATIENT
  Age: 2 Month
  Sex: Female
  Weight: 5.44 kg

DRUGS (1)
  1. INFANTS MYLICON NON-STAINING FORMULA [Suspect]
     Indication: FLATULENCE
     Dosage: 20MG 4-5 TIMES A DAY SINCE BIRTH
     Route: 048

REACTIONS (3)
  - ABNORMAL FAECES [None]
  - HAEMATOCHEZIA [None]
  - THERAPEUTIC RESPONSE DECREASED [None]
